FAERS Safety Report 9925128 (Version 1)
Quarter: 2014Q1

REPORT INFORMATION
  Report Type: Report from Study
  Country: US (occurrence: US)
  Receive Date: 20140226
  Receipt Date: 20140226
  Transmission Date: 20141002
  Serious: Yes (Hospitalization, Other)
  Sender: FDA-Public Use
  Company Number: US-PFIZER INC-2014053880

PATIENT
  Age: 55 Year
  Sex: Female
  Weight: 82.99 kg

DRUGS (13)
  1. MS CONTIN [Suspect]
     Indication: PAIN
     Dosage: 30 MG, 3X/DAY
     Route: 048
     Dates: start: 20131230, end: 20140117
  2. ATIVAN [Suspect]
     Dosage: 2 MG, PM
     Route: 048
     Dates: start: 2004
  3. BLINDED THERAPY [Suspect]
     Indication: CONSTIPATION
     Dosage: UNK
     Dates: start: 20131126
  4. AMITRIPTYLINE [Suspect]
     Dosage: 200 MG, QD PRN
     Route: 048
     Dates: start: 2009
  5. NEXIUM [Concomitant]
     Dosage: UNK
     Dates: start: 2009
  6. RISPERDAL [Concomitant]
     Dosage: UNK
     Dates: start: 2009
  7. SOMA [Concomitant]
     Dosage: UNK
     Dates: start: 2011
  8. TOPAMAX [Concomitant]
     Dosage: UNK
  9. NICOTINE [Concomitant]
     Dosage: UNK
     Dates: end: 20140107
  10. DUONEB [Concomitant]
     Dosage: UNK
     Dates: end: 20140107
  11. CYMBALTA [Concomitant]
     Dosage: UNK
  12. MOTRIN [Concomitant]
     Dosage: UNK
     Dates: start: 2004
  13. PRO-AIR [Concomitant]
     Dosage: UNK
     Dates: start: 2004

REACTIONS (3)
  - Overdose [Unknown]
  - Confusional state [Recovered/Resolved]
  - Oxygen saturation decreased [Unknown]
